FAERS Safety Report 7790760-4 (Version None)
Quarter: 2011Q3

REPORT INFORMATION
  Report Type: 
  Country: None (occurrence: None)
  Receive Date: 20110930
  Receipt Date: 20110830
  Transmission Date: 20111222
  Serious: Yes (Hospitalization, Other)
  Sender: FDA-Public Use
  Company Number: PHHY2011JP77594

PATIENT
  Age: 69 Year
  Sex: Male

DRUGS (3)
  1. GLEEVEC [Suspect]
     Dosage: 300 MG, DAIULY
     Route: 048
     Dates: start: 20100902
  2. GLEEVEC [Suspect]
     Indication: CHRONIC MYELOID LEUKAEMIA
     Dosage: 400 MG, DAILY
     Route: 048
     Dates: start: 20041030
  3. VESICARE [Concomitant]
     Route: 048
     Dates: end: 20101029

REACTIONS (6)
  - GAIT DISTURBANCE [None]
  - ORTHOSTATIC HYPOTENSION [None]
  - BLOOD CREATINE PHOSPHOKINASE INCREASED [None]
  - TREMOR [None]
  - CERVICAL SPINAL STENOSIS [None]
  - MUSCULAR WEAKNESS [None]
